FAERS Safety Report 5071668-4 (Version None)
Quarter: 2006Q3

REPORT INFORMATION
  Report Type: 
  Country: None (occurrence: None)
  Receive Date: 20060801
  Receipt Date: 20060719
  Transmission Date: 20061208
  Serious: Yes (Hospitalization)
  Sender: FDA-Public Use
  Company Number: 2006014977

PATIENT
  Age: 32 Year
  Sex: Male

DRUGS (1)
  1. MEDROL TABLET  (METYLPREDNISOLONE) [Suspect]
     Indication: ECZEMA
     Dosage: 16 MG (16 MG, 1 IN 1 D), ORAL
     Route: 048

REACTIONS (5)
  - ANOREXIA [None]
  - ANXIETY [None]
  - DEHYDRATION [None]
  - DIZZINESS [None]
  - MUSCLE SPASMS [None]
